FAERS Safety Report 7537305-1 (Version None)
Quarter: 2011Q2

REPORT INFORMATION
  Report Type: 
  Country: None (occurrence: None)
  Receive Date: 20110609
  Receipt Date: 20110525
  Transmission Date: 20111010
  Serious: No
  Sender: FDA-Public Use
  Company Number: US-DX529-2011DX000026

PATIENT
  Age: 20 Year
  Sex: Male

DRUGS (1)
  1. KALBITOR [Suspect]
     Indication: HEREDITARY ANGIOEDEMA
     Route: 058
     Dates: start: 20110304, end: 20110304

REACTIONS (3)
  - INJECTION SITE INDURATION [None]
  - INJECTION SITE ERYTHEMA [None]
  - HYPERSENSITIVITY [None]
